FAERS Safety Report 14681839 (Version 1)
Quarter: 2018Q1

REPORT INFORMATION
  Report Type: Spontaneous
  Country: US (occurrence: US)
  Receive Date: 20180326
  Receipt Date: 20180326
  Transmission Date: 20180509
  Serious: No
  Sender: FDA-Public Use
  Company Number: US-JAZZ-2017-US-003951

PATIENT
  Sex: Female

DRUGS (2)
  1. FAZACLO [Suspect]
     Active Substance: CLOZAPINE
     Dosage: 25 MG, BID PRN (ALONG WITH 850 MG DAILY)
     Route: 048
  2. FAZACLO [Suspect]
     Active Substance: CLOZAPINE
     Indication: PRODUCT USED FOR UNKNOWN INDICATION
     Dosage: 850 MG, QD (IN 3 DIVIDED DOSES)
     Route: 048

REACTIONS (2)
  - Abnormal behaviour [Unknown]
  - Insomnia [Unknown]
